FAERS Safety Report 12736711 (Version 2)
Quarter: 2016Q4

REPORT INFORMATION
  Report Type: Spontaneous
  Country: BE (occurrence: BE)
  Receive Date: 20160913
  Receipt Date: 20161220
  Transmission Date: 20170207
  Serious: Yes (Hospitalization)
  Sender: FDA-Public Use
  Company Number: PHHY2016BE125381

PATIENT
  Age: 53 Year
  Sex: Female
  Weight: 60 kg

DRUGS (8)
  1. DEPAKINE CHRONO [Concomitant]
     Active Substance: VALPROATE SODIUM
     Indication: PRODUCT USED FOR UNKNOWN INDICATION
     Route: 065
  2. DIPHANTOINE [Suspect]
     Active Substance: PHENYTOIN
     Dosage: 150 MG, BID
     Route: 048
     Dates: start: 201507, end: 20160804
  3. TEGRETOL [Suspect]
     Active Substance: CARBAMAZEPINE
     Indication: EPILEPSY
     Dosage: 400 MG, QD
     Route: 048
     Dates: start: 201507, end: 201510
  4. FYCOMPA [Suspect]
     Active Substance: PERAMPANEL
     Indication: EPILEPSY
     Dosage: 2 MG, QD
     Route: 048
     Dates: start: 20160603
  5. DIPHANTOINE [Suspect]
     Active Substance: PHENYTOIN
     Dosage: 100 MG, BID
     Route: 048
     Dates: start: 201404, end: 201507
  6. DIPHANTOINE [Suspect]
     Active Substance: PHENYTOIN
     Dosage: 250 MG, QD
     Route: 048
     Dates: start: 20160808
  7. TEGRETOL [Suspect]
     Active Substance: CARBAMAZEPINE
     Dosage: 600 MG, QD
     Route: 048
     Dates: start: 201510
  8. DIPHANTOINE [Suspect]
     Active Substance: PHENYTOIN
     Indication: EPILEPSY
     Dosage: 100 MG, TID
     Route: 048
     Dates: start: 201401, end: 201404

REACTIONS (2)
  - Hyponatraemia [Recovered/Resolved]
  - Toxicity to various agents [Recovered/Resolved]

NARRATIVE: CASE EVENT DATE: 20160624
